FAERS Safety Report 8120425-0 (Version None)
Quarter: 2012Q1

REPORT INFORMATION
  Report Type: 
  Country: None (occurrence: None)
  Receive Date: 20120207
  Receipt Date: 20120125
  Transmission Date: 20120608
  Serious: Yes (Other)
  Sender: FDA-Public Use
  Company Number: US-ELI_LILLY_AND_COMPANY-US201109002074

PATIENT
  Sex: Male

DRUGS (11)
  1. FORTEO [Suspect]
     Indication: OSTEOPOROSIS
     Dosage: 20 UG, QD
     Dates: start: 20110801
  2. VITAMIN TAB [Concomitant]
     Dosage: UNK, QD
  3. ALLOPURINOL [Concomitant]
     Indication: GOUT
  4. FORTEO [Suspect]
     Dosage: 20 UG, QD
     Route: 065
  5. CALCIUM [Concomitant]
  6. OXYGEN [Concomitant]
  7. ACCUPRIL [Concomitant]
     Indication: BLOOD PRESSURE
  8. ASPIRIN [Concomitant]
  9. LIPITOR [Concomitant]
  10. CO Q-10 [Concomitant]
  11. VITAMIN D [Concomitant]

REACTIONS (4)
  - PARAESTHESIA [None]
  - BLOOD URINE PRESENT [None]
  - BLADDER CANCER [None]
  - DIARRHOEA [None]
